FAERS Safety Report 9891408 (Version 2)
Quarter: 2014Q1

REPORT INFORMATION
  Report Type: Spontaneous
  Country: US (occurrence: US)
  Receive Date: 20140212
  Receipt Date: 20140324
  Transmission Date: 20141002
  Serious: Yes (Other)
  Sender: FDA-Public Use
  Company Number: US-PFIZER INC-2014037750

PATIENT
  Age: 66 Year
  Sex: Female

DRUGS (1)
  1. XELJANZ [Suspect]
     Indication: RHEUMATOID ARTHRITIS
     Dosage: 5 MG, 2X/DAY
     Route: 048
     Dates: start: 20140101, end: 20140203

REACTIONS (18)
  - Rheumatoid arthritis [Unknown]
  - Epistaxis [Unknown]
  - Rash [Unknown]
  - Nodule [Unknown]
  - Breast mass [Unknown]
  - Vaginal infection [Unknown]
  - Anorectal infection [Unknown]
  - Diarrhoea [Unknown]
  - Lymphadenopathy [Recovered/Resolved]
  - Dysphonia [Unknown]
  - Feeling abnormal [Unknown]
  - Irritability [Unknown]
  - Joint swelling [Unknown]
  - Enuresis [Unknown]
  - Malaise [Unknown]
  - Fatigue [Unknown]
  - Arthralgia [Unknown]
  - Joint stiffness [Unknown]
